FAERS Safety Report 10013546 (Version 2)
Quarter: 2014Q2

REPORT INFORMATION
  Report Type: Report from Study
  Country: DE (occurrence: DE)
  Receive Date: 20140315
  Receipt Date: 20140402
  Transmission Date: 20141212
  Serious: Yes (Death, Other)
  Sender: FDA-Public Use
  Company Number: DE-ABBVIE-14K-062-1212658-00

PATIENT
  Age: 86 Year
  Sex: Male

DRUGS (3)
  1. LEUPRORELIN [Suspect]
     Indication: PROSTATE CANCER
     Dates: start: 20120601, end: 20131113
  2. ORAL ANTIDIABETICS [Concomitant]
     Indication: PRODUCT USED FOR UNKNOWN INDICATION
  3. UNSPECIFIED ALPHA LOCKER MEDICATION [Concomitant]
     Indication: PRODUCT USED FOR UNKNOWN INDICATION

REACTIONS (3)
  - Death [Fatal]
  - Circulatory collapse [Fatal]
  - Cardiac failure [Fatal]
